FAERS Safety Report 25241099 (Version 7)
Quarter: 2025Q2

REPORT INFORMATION
  Report Type: Spontaneous
  Country: US (occurrence: US)
  Receive Date: 20250425
  Receipt Date: 20250618
  Transmission Date: 20250717
  Serious: Yes (Other)
  Sender: PFIZER
  Company Number: US-PFIZER INC-202500077503

PATIENT
  Age: 41 Year
  Sex: Female

DRUGS (5)
  1. TUKYSA [Suspect]
     Active Substance: TUCATINIB
     Indication: Breast cancer female
     Dosage: 300 MG, 2X/DAY (150 MG (BY MOUTH) TWO TABLETS TWICE DAILY WITH FOOD)
     Route: 048
     Dates: start: 202403
  2. TUKYSA [Suspect]
     Active Substance: TUCATINIB
     Indication: Breast cancer female
  3. TUKYSA [Suspect]
     Active Substance: TUCATINIB
     Indication: Metastases to central nervous system
  4. TRASTUZUMAB [Suspect]
     Active Substance: TRASTUZUMAB
  5. CAPECITABINE [Suspect]
     Active Substance: CAPECITABINE
     Indication: Breast cancer female

REACTIONS (1)
  - Metastases to central nervous system [Unknown]
